FAERS Safety Report 8657453 (Version 2)
Quarter: 2012Q4

REPORT INFORMATION
  Report Type: Spontaneous
  Country: JP (occurrence: None)
  Receive Date: 20120625
  Receipt Date: 20120926
  Transmission Date: 20130627
  Serious: Yes (Other)
  Sender: FDA-Public Use
  Company Number: JP-2012-15445

PATIENT
  Age: 76 Year
  Sex: Male
  Weight: 81 kg

DRUGS (10)
  1. SAMSCA [Suspect]
     Indication: CARDIAC FAILURE
     Dosage: QAM
     Route: 048
     Dates: start: 20120220, end: 20120804
  2. FERROMIA [Concomitant]
  3. DOXAZOSIN MESYLATE [Concomitant]
  4. ADALAT CR (NIFEDIPINE) TABLET [Concomitant]
  5. LIPITOR (ATORVASTATATIN CALCIUM) [Concomitant]
  6. CANDESARTAN CILEXETIL [Concomitant]
  7. DIART (AZOSEMIDE) TABLET [Concomitant]
  8. HERBESSER (DIALTAZEM  HYDROCHLORIDE) [Concomitant]
  9. KERLONG (BETAXOLOL HYDROCHLORIDE) TABLET [Concomitant]
  10. TANATRIL (IMIDAPRIL HYDROCHLORIDE) TABLET [Concomitant]

REACTIONS (6)
  - Blood urea increased [None]
  - Dehydration [None]
  - Protein urine present [None]
  - Haemoglobin decreased [None]
  - Red blood cell count decreased [None]
  - Restlessness [None]
